FAERS Safety Report 8338934-8 (Version None)
Quarter: 2012Q2

REPORT INFORMATION
  Report Type: 
  Country: None (occurrence: None)
  Receive Date: 20120506
  Receipt Date: 20120423
  Transmission Date: 20120825
  Serious: Yes (Hospitalization)
  Sender: FDA-Public Use
  Company Number: ES-MYLANLABS-2012S1008687

PATIENT
  Age: 83 Year
  Sex: Female

DRUGS (1)
  1. LOSARTAN POTASSIUM AND HYDROCHLOROTHIAZIDE [Suspect]
     Indication: HYPERTENSION
     Route: 048

REACTIONS (6)
  - TACHYCARDIA [None]
  - RESPIRATORY FAILURE [None]
  - HYPOTENSION [None]
  - ABDOMINAL PAIN [None]
  - ACUTE PULMONARY OEDEMA [None]
  - NAUSEA [None]
